APPROVED DRUG PRODUCT: LINCOCIN
Active Ingredient: LINCOMYCIN HYDROCHLORIDE
Strength: EQ 250MG BASE
Dosage Form/Route: CAPSULE;ORAL
Application: N050316 | Product #001
Applicant: PHARMACIA AND UPJOHN CO
Approved: Approved Prior to Jan 1, 1982 | RLD: No | RS: No | Type: DISCN